FAERS Safety Report 7613097-2 (Version None)
Quarter: 2011Q3

REPORT INFORMATION
  Report Type: 
  Country: None (occurrence: None)
  Receive Date: 20110713
  Receipt Date: 20110517
  Transmission Date: 20111222
  Serious: No
  Sender: FDA-Public Use
  Company Number: US-005399

PATIENT
  Sex: Male

DRUGS (12)
  1. C-VITAMIN [Concomitant]
  2. TERAZOSIN HCL [Concomitant]
  3. FERROUS SULFATE TAB [Concomitant]
  4. CRESTOR [Concomitant]
  5. DEGARELIX 240 MG [Suspect]
     Indication: PRODUCT USED FOR UNKNOWN INDICATION
     Dosage: (240 MG 1X, 120 MG X 2 INJECTIONS SUBCUTANEOUSLY SUBCUTANEOUS)
     Route: 058
     Dates: start: 20110516
  6. ASACOL [Concomitant]
  7. Q-10 CO-ENZYME [Concomitant]
  8. ACCOMIN MULTIVITAMIN [Concomitant]
  9. FINASTERIDE [Concomitant]
  10. VITAMIN A [Concomitant]
  11. PLAVIX [Concomitant]
  12. ASPIRIN [Concomitant]

REACTIONS (2)
  - INJECTION SITE PAIN [None]
  - INJECTION SITE SWELLING [None]
